FAERS Safety Report 13385499 (Version 1)
Quarter: 2017Q1

REPORT INFORMATION
  Report Type: Spontaneous
  Country: US (occurrence: US)
  Receive Date: 20170330
  Receipt Date: 20170330
  Transmission Date: 20170429
  Serious: No
  Sender: FDA-Public Use
  Company Number: US-AUROBINDO-AUR-APL-2014-04811

PATIENT
  Sex: Female
  Weight: 57.61 kg

DRUGS (3)
  1. LOTENSIN [Concomitant]
     Active Substance: BENAZEPRIL HYDROCHLORIDE
     Indication: HYPERTENSION
     Dosage: 20 MG,DAILY,
     Route: 065
  2. GABAPENTIN CAPSULES 300 MG [Suspect]
     Active Substance: GABAPENTIN
     Indication: FIBROMYALGIA
     Dosage: 300 MG,DAILY,
     Route: 065
  3. BENAZEPRIL [Concomitant]
     Active Substance: BENAZEPRIL HYDROCHLORIDE
     Indication: HYPERTENSION
     Dosage: 25 MG,DAILY,
     Route: 065

REACTIONS (3)
  - Fibromyalgia [Not Recovered/Not Resolved]
  - Off label use [Not Recovered/Not Resolved]
  - Tremor [Not Recovered/Not Resolved]
